FAERS Safety Report 6134066-8 (Version None)
Quarter: 2009Q1

REPORT INFORMATION
  Report Type: 
  Country: None (occurrence: None)
  Receive Date: 20090326
  Receipt Date: 20090325
  Transmission Date: 20090719
  Serious: No
  Sender: FDA-Public Use
  Company Number: US-B.I. PHARMACEUTICALS,INC./RIDGEFIELD-2009-BP-02731BP

PATIENT
  Age: 50 Year
  Sex: Female
  Weight: 60 kg

DRUGS (6)
  1. MIRAPEX [Suspect]
     Indication: PERIODIC LIMB MOVEMENT DISORDER
     Dosage: .5MG
     Dates: start: 20070501
  2. ALLEGRA [Concomitant]
     Dosage: 180MG
  3. ZOLOFT [Concomitant]
     Dosage: 100MG
  4. NEXIUM [Concomitant]
     Dosage: 40MG
  5. RITALIN [Concomitant]
  6. SINGULAIR [Concomitant]
     Dosage: 10MG

REACTIONS (1)
  - PATHOLOGICAL GAMBLING [None]
